FAERS Safety Report 8505487-0 (Version None)
Quarter: 2012Q3

REPORT INFORMATION
  Report Type: 
  Country: None (occurrence: None)
  Receive Date: 20120712
  Receipt Date: 20120703
  Transmission Date: 20120928
  Serious: Yes (Life-Threatening, Other)
  Sender: FDA-Public Use
  Company Number: US-JNJFOC-20120410009

PATIENT
  Sex: Female
  Weight: 108.86 kg

DRUGS (1)
  1. GOLIMUMAB [Suspect]
     Indication: PSORIASIS
     Route: 058
     Dates: start: 20110301

REACTIONS (1)
  - CELLULITIS [None]
